FAERS Safety Report 21421563 (Version 1)
Quarter: 2022Q4

REPORT INFORMATION
  Report Type: Spontaneous
  Country: US (occurrence: US)
  Receive Date: 20221007
  Receipt Date: 20221007
  Transmission Date: 20230112
  Serious: No
  Sender: FDA-Public Use
  Company Number: US-009507513-2209USA006683

PATIENT
  Sex: Female

DRUGS (4)
  1. JANUVIA [Suspect]
     Active Substance: SITAGLIPTIN PHOSPHATE
     Indication: Diabetes mellitus
     Dosage: UNK
     Route: 048
     Dates: start: 2007, end: 2008
  2. GLYBURIDE [Suspect]
     Active Substance: GLYBURIDE
     Dosage: 5 MG./TWICE A DAY
  3. METFORMIN [Suspect]
     Active Substance: METFORMIN HYDROCHLORIDE
     Dosage: 500 MG./TWICE A DAY
  4. JARDIANCE [Suspect]
     Active Substance: EMPAGLIFLOZIN

REACTIONS (5)
  - Weight decreased [Unknown]
  - Adverse event [Unknown]
  - Blood glucose decreased [Unknown]
  - Insurance issue [Unknown]
  - Therapy interrupted [Unknown]
